FAERS Safety Report 17656710 (Version 1)
Quarter: 2020Q2

REPORT INFORMATION
  Report Type: Spontaneous
  Country: US (occurrence: US)
  Receive Date: 20200410
  Receipt Date: 20200410
  Transmission Date: 20200713
  Serious: No
  Sender: FDA-Public Use
  Company Number: US-PERRIGO-19US016990

PATIENT
  Sex: Male

DRUGS (1)
  1. PSEUDOEPHEDRINE HYDROCHLORIDE. [Suspect]
     Active Substance: PSEUDOEPHEDRINE HYDROCHLORIDE
     Indication: SINUS CONGESTION
     Dosage: 1/2 TABLET OR 120 MG, UNKNOWN
     Route: 048

REACTIONS (3)
  - Incorrect product administration duration [Unknown]
  - Incorrect dose administered [Unknown]
  - Wrong technique in product usage process [Unknown]
